FAERS Safety Report 4910671-9 (Version None)
Quarter: 2006Q1

REPORT INFORMATION
  Report Type: 
  Country: None (occurrence: None)
  Receive Date: 20060214
  Receipt Date: 20060201
  Transmission Date: 20060701
  Serious: Yes (Hospitalization)
  Sender: FDA-Public Use
  Company Number: US-BRISTOL-MYERS SQUIBB COMPANY-13267133

PATIENT
  Age: 41 Year
  Sex: Male
  Weight: 67 kg

DRUGS (21)
  1. STAVUDINE [Suspect]
     Indication: HIV INFECTION
     Route: 048
     Dates: start: 20050317, end: 20051125
  2. RITONAVIR [Concomitant]
     Indication: HIV INFECTION
     Dosage: WITH-HELD ON 25-NOV-2005, RESTARTED ON AN UNSPECIFIED DATE
     Route: 048
     Dates: start: 20050317
  3. ALCOHOL [Concomitant]
     Dosage: INGESTED APPROXIMATELY 10 BEERS DURING THANKSGIVING DINNER.
     Route: 048
     Dates: start: 20051124, end: 20051124
  4. EMTRICITABINE [Concomitant]
     Indication: HIV INFECTION
     Dosage: WITH-HELD ON 25-NOV-2005, RESTARTED ON AN UNSPECIFIED DATE
     Route: 048
     Dates: start: 20050412
  5. ASPIRIN [Concomitant]
  6. AMBIEN [Concomitant]
  7. REGLAN [Concomitant]
  8. TRUVADA [Concomitant]
  9. TENOFOVIR [Concomitant]
     Indication: HIV INFECTION
     Dosage: WITH-HELD ON 25-NOV-2005, RESTARTED ON AN UNSPECIFIED DATE
     Route: 048
     Dates: start: 20050412
  10. DIFLUCAN [Concomitant]
     Indication: ANTIFUNGAL PROPHYLAXIS
     Route: 048
  11. PROTONIX [Concomitant]
     Indication: GASTROOESOPHAGEAL REFLUX DISEASE
     Route: 048
  12. LANTUS [Concomitant]
     Indication: DIABETES MELLITUS
     Route: 058
     Dates: start: 20050831
  13. REGULAR INSULIN [Concomitant]
     Indication: DIABETES MELLITUS
     Route: 058
     Dates: start: 20050831
  14. LISINOPRIL [Concomitant]
     Indication: HYPERTENSION
     Route: 048
     Dates: start: 20050907
  15. LASIX [Concomitant]
     Indication: MYOCARDIAL INFARCTION
     Route: 048
     Dates: start: 20050901
  16. NITROGLYCERIN [Concomitant]
     Indication: MYOCARDIAL INFARCTION
     Route: 060
     Dates: start: 20050901
  17. LIPITOR [Concomitant]
     Indication: MYOCARDIAL INFARCTION
     Route: 048
     Dates: start: 20050901
  18. PLAVIX [Concomitant]
     Route: 048
     Dates: start: 20050906
  19. NEURONTIN [Concomitant]
     Route: 048
     Dates: start: 20050901
  20. BACTRIM [Concomitant]
     Indication: PROPHYLAXIS
     Route: 048
     Dates: start: 20050901
  21. CARVEDILOL [Concomitant]
     Indication: ISCHAEMIC HEART DISEASE PROPHYLAXIS
     Route: 048
     Dates: start: 20051012

REACTIONS (2)
  - ILEUS [None]
  - LACTIC ACIDOSIS [None]
